FAERS Safety Report 6698624-4 (Version None)
Quarter: 2010Q2

REPORT INFORMATION
  Report Type: 
  Country: None (occurrence: None)
  Receive Date: 20100427
  Receipt Date: 20100416
  Transmission Date: 20101027
  Serious: Yes (Death, Other)
  Sender: FDA-Public Use
  Company Number: JP-PFIZER INC-2008081401

PATIENT
  Age: 52 Year
  Sex: Female
  Weight: 46 kg

DRUGS (26)
  1. SILDENAFIL CITRATE [Suspect]
     Indication: PULMONARY HYPERTENSION
     Dosage: 20 MG, 1X/DAY
     Dates: start: 20080920, end: 20080920
  2. SILDENAFIL CITRATE [Suspect]
     Dosage: 10 MG, 1X/DAY
     Dates: start: 20080925, end: 20080926
  3. SILDENAFIL CITRATE [Suspect]
     Dosage: 10 MG, 2X/DAY
     Dates: start: 20080927, end: 20080929
  4. SILDENAFIL CITRATE [Suspect]
     Dosage: 40 MG, 2X/DAY
     Dates: start: 20080930, end: 20081001
  5. SILDENAFIL CITRATE [Suspect]
     Dosage: 20 MG, 3X/DAY
     Dates: start: 20081002, end: 20081003
  6. SILDENAFIL CITRATE [Suspect]
     Dosage: 20 MG, 2X/DAY
     Dates: start: 20081004, end: 20081126
  7. SILDENAFIL CITRATE [Suspect]
     Dosage: 40 MG, 3X/DAY
     Dates: start: 20081127, end: 20090521
  8. SILDENAFIL CITRATE [Suspect]
     Dosage: 20 MG, 2X/DAY
     Dates: start: 20090522
  9. DIGOSIN [Suspect]
     Indication: RIGHT VENTRICULAR FAILURE
     Route: 048
     Dates: end: 20080920
  10. TRACLEER [Concomitant]
     Dosage: UNK
     Route: 048
  11. FLOLAN [Concomitant]
     Dosage: UNK
     Route: 042
  12. THYRADIN S [Concomitant]
     Dosage: UNK
     Route: 048
  13. ALFAROL [Concomitant]
     Dosage: UNK
     Route: 048
     Dates: end: 20090214
  14. LASIX [Concomitant]
     Dosage: UNK
     Route: 048
  15. BIO THREE [Concomitant]
     Dosage: UNK
     Route: 048
     Dates: end: 20090214
  16. OMEPRAZOLE [Concomitant]
     Dosage: UNK
     Route: 048
     Dates: end: 20090210
  17. MUCOSOLVAN [Concomitant]
     Dosage: UNK
     Route: 048
     Dates: end: 20090214
  18. HOKUNALIN [Concomitant]
  19. COTRIM [Concomitant]
     Dosage: UNK
     Route: 048
     Dates: end: 20090211
  20. CRESTOR [Concomitant]
     Dosage: UNK
     Route: 048
     Dates: end: 20090214
  21. PREDONINE [Concomitant]
     Dosage: UNK
     Route: 048
  22. CINAL [Concomitant]
     Dosage: UNK
     Route: 048
     Dates: end: 20090214
  23. ALENDRONATE SODIUM [Concomitant]
     Dosage: UNK
     Route: 048
     Dates: end: 20090209
  24. MAGNESIUM OXIDE [Concomitant]
     Route: 048
  25. INOVAN [Concomitant]
     Route: 042
  26. DOBUTAMINE HYDROCHLORIDE [Concomitant]
     Route: 042

REACTIONS (4)
  - ATRIOVENTRICULAR BLOCK [None]
  - BRADYARRHYTHMIA [None]
  - DYSPNOEA [None]
  - RIGHT VENTRICULAR FAILURE [None]
